FAERS Safety Report 23124928 (Version 1)
Quarter: 2023Q4

REPORT INFORMATION
  Report Type: Other
  Country: CN (occurrence: CN)
  Receive Date: 20231030
  Receipt Date: 20231030
  Transmission Date: 20240109
  Serious: Yes (Hospitalization)
  Sender: FDA-Public Use
  Company Number: CN-GE HEALTHCARE-2023CSU009637

PATIENT
  Age: 58 Year
  Sex: Male
  Weight: 62 kg

DRUGS (4)
  1. OMNIPAQUE [Suspect]
     Active Substance: IOHEXOL
     Indication: Urogram
     Dosage: 35 GM, SINGLE
     Route: 042
     Dates: start: 20230914, end: 20230914
  2. OMNIPAQUE [Suspect]
     Active Substance: IOHEXOL
     Indication: Benign prostatic hyperplasia
  3. OMNIPAQUE [Suspect]
     Active Substance: IOHEXOL
     Indication: Haematuria
  4. OMNIPAQUE [Suspect]
     Active Substance: IOHEXOL
     Indication: Urinary tract infection

REACTIONS (3)
  - Hyperpyrexia [Recovered/Resolved]
  - Temperature intolerance [Recovering/Resolving]
  - Chills [Recovering/Resolving]

NARRATIVE: CASE EVENT DATE: 20230914
